FAERS Safety Report 8062512-1 (Version None)
Quarter: 2012Q1

REPORT INFORMATION
  Report Type: 
  Country: None (occurrence: None)
  Receive Date: 20120123
  Receipt Date: 20120116
  Transmission Date: 20120608
  Serious: No
  Sender: FDA-Public Use
  Company Number: US-B.I. PHARMACEUTICALS,INC./RIDGEFIELD-2012-BP-00946BP

PATIENT
  Sex: Female

DRUGS (2)
  1. ZANTAC [Suspect]
  2. ZANTAC [Suspect]
     Indication: DYSPEPSIA
     Route: 048

REACTIONS (2)
  - DYSPEPSIA [None]
  - DIARRHOEA [None]
